FAERS Safety Report 8967686 (Version 2)
Quarter: 2013Q1

REPORT INFORMATION
  Report Type: Spontaneous
  Country: US (occurrence: None)
  Receive Date: 20121206
  Receipt Date: 20130201
  Transmission Date: 20140127
  Serious: Yes (Hospitalization)
  Sender: FDA-Public Use
  Company Number: INT_00153_2012

PATIENT
  Age: 14 Year
  Sex: Female
  Weight: 56.4 kg

DRUGS (16)
  1. CEFEPIME [Suspect]
     Indication: ENTEROBACTER INFECTION
     Route: 042
  2. CEFEPIME [Suspect]
     Indication: ARTHRITIS BACTERIAL
     Route: 042
  3. BACLOFEN [Concomitant]
  4. GABAPENTIN [Concomitant]
  5. ACETAMINOPHEN W/HYDROCODONE [Concomitant]
  6. CALCITRIOL [Concomitant]
  7. LEVOTHYROXINE [Concomitant]
  8. CALCIUM CARBONATE [Concomitant]
  9. LANSOPRAZOLE [Concomitant]
  10. SENNA /00142201/ [Concomitant]
  11. DOCUSATE [Concomitant]
  12. PROBIOTICA [Concomitant]
  13. TOBRAMYCIN [Concomitant]
  14. ENOXAPARIN [Concomitant]
  15. IMMUNOGLOBULN HUMAN [Concomitant]
  16. MULTIVITAMINS, PLAIN [Concomitant]

REACTIONS (6)
  - Encephalopathy [None]
  - Antibiotic level above therapeutic [None]
  - Renal failure acute [None]
  - Convulsion [None]
  - Neurotoxicity [None]
  - Condition aggravated [None]
